FAERS Safety Report 23439228 (Version 1)
Quarter: 2024Q1

REPORT INFORMATION
  Report Type: Spontaneous
  Country: KR (occurrence: KR)
  Receive Date: 20240124
  Receipt Date: 20240124
  Transmission Date: 20240410
  Serious: Yes (Death, Other)
  Sender: FDA-Public Use
  Company Number: KR-ELI_LILLY_AND_COMPANY-KR202401011012

PATIENT
  Age: 74 Year
  Sex: Male

DRUGS (1)
  1. CYRAMZA [Suspect]
     Active Substance: RAMUCIRUMAB
     Indication: Product used for unknown indication
     Dosage: 700 MG, UNKNOWN
     Route: 042
     Dates: start: 20231222, end: 20231222

REACTIONS (2)
  - Pneumonia [Fatal]
  - Lung neoplasm malignant [Unknown]
